FAERS Safety Report 9660646 (Version 2)
Quarter: 2013Q4

REPORT INFORMATION
  Report Type: Spontaneous
  Country: JP (occurrence: JP)
  Receive Date: 20131031
  Receipt Date: 20131125
  Transmission Date: 20140711
  Serious: Yes (Other)
  Sender: FDA-Public Use
  Company Number: JP-BAYER-2013-132775

PATIENT
  Age: 69 Year
  Sex: Male

DRUGS (2)
  1. BAYASPIRIN [Suspect]
     Indication: POSTINFARCTION ANGINA
     Dosage: 100 MG, QD
     Route: 048
  2. LANSOPRAZOLE [Suspect]
     Route: 065

REACTIONS (2)
  - Eosinophilia [None]
  - Pleural effusion [None]
